FAERS Safety Report 7266502-8 (Version None)
Quarter: 2011Q1

REPORT INFORMATION
  Report Type: 
  Country: None (occurrence: None)
  Receive Date: 20110131
  Receipt Date: 20110124
  Transmission Date: 20110831
  Serious: Yes (Hospitalization, Other)
  Sender: FDA-Public Use
  Company Number: US-ELI_LILLY_AND_COMPANY-US200906004344

PATIENT
  Sex: Female
  Weight: 73.469 kg

DRUGS (12)
  1. TYLENOL (CAPLET) [Concomitant]
     Dosage: UNK, AS NEEDED
  2. NIACIN AND INOSITOL [Concomitant]
     Dosage: 1000 MG, 2/D
     Route: 048
  3. LISINOPRIL [Concomitant]
     Indication: BLOOD PRESSURE
     Dosage: 5 MG, DAILY (1/D)
     Route: 048
  4. VICODIN [Concomitant]
     Dosage: UNK, AS NEEDED
  5. BYETTA [Suspect]
     Dosage: UNK, 2/D
     Dates: start: 20070824, end: 20090114
  6. GAS X [Concomitant]
  7. IBUPROFEN [Concomitant]
     Dosage: 800 MG, AS NEEDED
  8. ALBUTEROL [Concomitant]
     Dosage: UNK, AS NEEDED
  9. BYETTA [Suspect]
     Dosage: 10 UG, 2/D
     Dates: start: 20051209, end: 20060101
  10. NASACORT [Concomitant]
  11. ASPIRIN [Concomitant]
     Dosage: 81 MG, DAILY (1/D)
  12. BYETTA [Suspect]
     Indication: TYPE 2 DIABETES MELLITUS
     Dosage: 5 UG, 2/D
     Dates: start: 20051110, end: 20051209

REACTIONS (3)
  - ABDOMINAL PAIN [None]
  - PANCREATITIS ACUTE [None]
  - RENAL INJURY [None]
